FAERS Safety Report 19668580 (Version 1)
Quarter: 2021Q3

REPORT INFORMATION
  Report Type: Report from Study
  Country: DO (occurrence: DO)
  Receive Date: 20210806
  Receipt Date: 20210806
  Transmission Date: 20211014
  Serious: Yes (Other)
  Sender: FDA-Public Use
  Company Number: NVSC2021DO122397

PATIENT
  Age: 48 Year
  Sex: Male

DRUGS (1)
  1. SCAPHO [Suspect]
     Active Substance: SECUKINUMAB
     Indication: ANKYLOSING SPONDYLITIS
     Dosage: 150 MG, QMO
     Route: 058
     Dates: start: 20191015

REACTIONS (3)
  - General physical health deterioration [Not Recovered/Not Resolved]
  - Thrombosis [Unknown]
  - Bacterial infection [Unknown]

NARRATIVE: CASE EVENT DATE: 20210401
